FAERS Safety Report 15340038 (Version 1)
Quarter: 2018Q3

REPORT INFORMATION
  Report Type: Spontaneous
  Country: US (occurrence: US)
  Receive Date: 20180831
  Receipt Date: 20180831
  Transmission Date: 20181010
  Serious: No
  Sender: FDA-Public Use
  Company Number: US-BAUSCH-BL-2018-023401

PATIENT
  Sex: Male

DRUGS (1)
  1. CYCLOPENTOLATE HYDROCHLORIDE OPHTHALMIC SOLUTION USP 1% [Suspect]
     Active Substance: CYCLOPENTOLATE HYDROCHLORIDE
     Indication: PRODUCT USED FOR UNKNOWN INDICATION
     Route: 065

REACTIONS (2)
  - Dysgeusia [Unknown]
  - Visual impairment [Unknown]
